FAERS Safety Report 13781445 (Version 1)
Quarter: 2017Q3

REPORT INFORMATION
  Report Type: Spontaneous
  Country: US (occurrence: US)
  Receive Date: 20170723
  Receipt Date: 20170723
  Transmission Date: 20171127
  Serious: No
  Sender: FDA-Public Use
  Company Number: None

PATIENT
  Age: 63 Year
  Sex: Male

DRUGS (1)
  1. REGORAFENIB [Suspect]
     Active Substance: REGORAFENIB
     Indication: COLON CANCER
     Dates: start: 20170420, end: 20170522

REACTIONS (5)
  - Dizziness [None]
  - Dry mouth [None]
  - Pharyngeal disorder [None]
  - Asthenia [None]
  - Hypotension [None]

NARRATIVE: CASE EVENT DATE: 20170522
